FAERS Safety Report 15671041 (Version 1)
Quarter: 2018Q4

REPORT INFORMATION
  Report Type: Spontaneous
  Country: FR (occurrence: FR)
  Receive Date: 20181129
  Receipt Date: 20181129
  Transmission Date: 20190205
  Serious: Yes (Other)
  Sender: FDA-Public Use
  Company Number: FR-ALLERGAN-1854986US

PATIENT
  Age: 50 Year
  Sex: Male
  Weight: 71 kg

DRUGS (1)
  1. XYDALBA [Suspect]
     Active Substance: DALBAVANCIN HYDROCHLORIDE
     Indication: STAPHYLOCOCCAL INFECTION
     Dosage: 1500 MG, Q WEEK
     Route: 042
     Dates: start: 20180621, end: 20180726

REACTIONS (1)
  - Hepatocellular injury [Recovering/Resolving]

NARRATIVE: CASE EVENT DATE: 20180628
